FAERS Safety Report 9731492 (Version 1)
Quarter: 2013Q4

REPORT INFORMATION
  Report Type: Spontaneous
  Country: IS (occurrence: None)
  Receive Date: 20131204
  Receipt Date: 20131204
  Transmission Date: 20140711
  Serious: Yes (Hospitalization)
  Sender: FDA-Public Use
  Company Number: IS-013777

PATIENT
  Sex: Female

DRUGS (1)
  1. PICOPREP (PICOPREP) (NOT SPECIFIED) [Suspect]
     Indication: COLONOSCOPY
     Dosage: 1 DF TOTAL ORAL
     Route: 048
     Dates: start: 20131024

REACTIONS (7)
  - Cardiac fibrillation [None]
  - Vomiting [None]
  - Asthenia [None]
  - Hyperhidrosis [None]
  - Retching [None]
  - Nausea [None]
  - Depressed level of consciousness [None]
